FAERS Safety Report 9602315 (Version 1)
Quarter: 2013Q4

REPORT INFORMATION
  Report Type: Spontaneous
  Country: US (occurrence: US)
  Receive Date: 20131007
  Receipt Date: 20131007
  Transmission Date: 20140711
  Serious: Yes (Hospitalization)
  Sender: FDA-Public Use
  Company Number: US-GLAXOSMITHKLINE-A1028458A

PATIENT
  Age: 46 Year
  Sex: Female

DRUGS (1)
  1. BENLYSTA [Suspect]
     Indication: SYSTEMIC LUPUS ERYTHEMATOSUS
     Dosage: 400MG MONTHLY
     Route: 042
     Dates: start: 20111201

REACTIONS (9)
  - Fatigue [Not Recovered/Not Resolved]
  - Pain [Not Recovered/Not Resolved]
  - Gastrointestinal pain [Unknown]
  - Musculoskeletal pain [Unknown]
  - Neck pain [Unknown]
  - Paraesthesia [Unknown]
  - Therapeutic response decreased [Not Recovered/Not Resolved]
  - Malaise [Unknown]
  - Gastrointestinal disorder [Unknown]
